FAERS Safety Report 9011886 (Version 1)
Quarter: 2012Q4

REPORT INFORMATION
  Report Type: Spontaneous
  Country: DE (occurrence: None)
  Receive Date: 20121228
  Receipt Date: 20121228
  Transmission Date: 20130627
  Serious: Yes (Other)
  Sender: FDA-Public Use
  Company Number: GER/GER/12/0027150

PATIENT
  Sex: Female
  Weight: 77 kg

DRUGS (6)
  1. ATORVASTATIN [Suspect]
     Indication: CRAMPS
     Route: 048
     Dates: start: 201205
  2. FLUVASTATIN [Suspect]
     Indication: MUSCLE PAIN
     Route: 048
     Dates: start: 201109
  3. INEGY [Suspect]
     Indication: MUSCLE PAIN
     Route: 048
     Dates: start: 20110801
  4. BEZAFIBRATE [Suspect]
     Indication: CRAMPS
     Route: 048
     Dates: start: 201204
  5. TREDAPTIVE [Suspect]
     Indication: STOMACH PAIN
     Route: 048
     Dates: start: 201209
  6. EZETROL [Suspect]
     Indication: STOMACH PAIN
     Route: 048
     Dates: start: 201209

REACTIONS (3)
  - Gastrointestinal disorder [None]
  - Musculoskeletal discomfort [None]
  - Gamma-glutamyltransferase increased [None]
